FAERS Safety Report 22398913 (Version 1)
Quarter: 2023Q2

REPORT INFORMATION
  Report Type: Spontaneous
  Country: US (occurrence: US)
  Receive Date: 20230602
  Receipt Date: 20230602
  Transmission Date: 20230722
  Serious: No
  Sender: FDA-Public Use
  Company Number: US-GLENMARK PHARMACEUTICALS-2022GMK074321

PATIENT

DRUGS (3)
  1. HEATHER [Suspect]
     Active Substance: NORETHINDRONE
     Indication: Oral contraception
     Dosage: UNK
     Route: 048
     Dates: start: 202206
  2. EVENING PRIMROSE OIL [OENOTHERA BIENNIS OIL] [Concomitant]
     Indication: Vitamin supplementation
     Dosage: UNK UNK, OD
     Route: 048
  3. MACA ROOT [Concomitant]
     Indication: Vitamin supplementation
     Dosage: UNK UNK, OD
     Route: 065

REACTIONS (1)
  - Menstrual disorder [Unknown]

NARRATIVE: CASE EVENT DATE: 20220701
